FAERS Safety Report 8413509-0 (Version None)
Quarter: 2012Q2

REPORT INFORMATION
  Report Type: 
  Country: None (occurrence: None)
  Receive Date: 20120605
  Receipt Date: 20120531
  Transmission Date: 20120825
  Serious: Yes (Hospitalization)
  Sender: FDA-Public Use
  Company Number: CL-ROCHE-1074380

PATIENT
  Age: 55 Year
  Sex: Male
  Weight: 57 kg

DRUGS (4)
  1. COPEGUS [Suspect]
     Indication: HEPATITIS C
     Dosage: 600MG IN THE MORNING AND 400MG AT NIGHT FOR 14 DAYS
     Route: 048
  2. PEGASYS [Suspect]
     Indication: HEPATITIS C
     Dosage: UNKNOWN
     Route: 058
     Dates: start: 20120405
  3. LOSARTAN [Concomitant]
     Dates: start: 20120201
  4. INSULIN [Concomitant]
     Dates: start: 20120201

REACTIONS (2)
  - PRURITUS [None]
  - BLOOD BILIRUBIN INCREASED [None]
